FAERS Safety Report 5696322-7 (Version None)
Quarter: 2008Q2

REPORT INFORMATION
  Report Type: 
  Country: None (occurrence: None)
  Receive Date: 20080407
  Receipt Date: 20080212
  Transmission Date: 20081010
  Serious: Yes (Other)
  Sender: FDA-Public Use
  Company Number: US-PURDUE-USA_2008_0031966

PATIENT
  Sex: Male

DRUGS (3)
  1. OXYCONTIN [Suspect]
     Indication: PAIN
     Dosage: 320 MG, TID
     Dates: start: 19980801, end: 20020401
  2. OXYFAST CONCENTRATE 20 MG/ML [Concomitant]
     Dosage: 60 MG, PRN
  3. ZANAFLEX [Concomitant]
     Dosage: UNK, PRN

REACTIONS (11)
  - ANHEDONIA [None]
  - COMA [None]
  - DEPRESSION [None]
  - DRUG DEPENDENCE [None]
  - DRUG TOLERANCE [None]
  - FEELING ABNORMAL [None]
  - HAEMATEMESIS [None]
  - IMPAIRED WORK ABILITY [None]
  - INADEQUATE ANALGESIA [None]
  - QUALITY OF LIFE DECREASED [None]
  - SOMNOLENCE [None]
